FAERS Safety Report 6420644-5 (Version None)
Quarter: 2009Q4

REPORT INFORMATION
  Report Type: 
  Country: None (occurrence: None)
  Receive Date: 20091027
  Receipt Date: 20091014
  Transmission Date: 20100525
  Serious: Yes (Hospitalization)
  Sender: FDA-Public Use
  Company Number: 231538J09USA

PATIENT
  Age: 49 Year
  Sex: Female

DRUGS (10)
  1. REBIF [Suspect]
     Indication: MULTIPLE SCLEROSIS
     Dosage: 44 MCG, 3 IN 1 WEEKS, SUBCUTANEOUS; 22 MCG,
     Route: 058
     Dates: start: 20080125, end: 20090101
  2. REBIF [Suspect]
     Indication: MULTIPLE SCLEROSIS
     Dosage: 44 MCG, 3 IN 1 WEEKS, SUBCUTANEOUS; 22 MCG,
     Route: 058
     Dates: start: 20090901, end: 20090101
  3. REBIF [Suspect]
     Indication: MULTIPLE SCLEROSIS
     Dosage: 44 MCG, 3 IN 1 WEEKS, SUBCUTANEOUS; 22 MCG,
     Route: 058
     Dates: start: 20090101, end: 20090801
  4. REBIF [Suspect]
     Indication: MULTIPLE SCLEROSIS
     Dosage: 44 MCG, 3 IN 1 WEEKS, SUBCUTANEOUS; 22 MCG,
     Route: 058
     Dates: start: 20090101
  5. TYLENOL [Concomitant]
  6. IBUPROFEN [Concomitant]
  7. TIZANIDINE HCL [Concomitant]
  8. LOPRESSOR [Concomitant]
  9. GABAPENTIN [Concomitant]
  10. TORADOL [Concomitant]

REACTIONS (5)
  - CHILLS [None]
  - HEADACHE [None]
  - INFLUENZA LIKE ILLNESS [None]
  - PYREXIA [None]
  - UTERINE CANCER [None]
